FAERS Safety Report 24252176 (Version 2)
Quarter: 2024Q3

REPORT INFORMATION
  Report Type: Report from Study
  Country: CA (occurrence: CA)
  Receive Date: 20240827
  Receipt Date: 20240913
  Transmission Date: 20241017
  Serious: No
  Sender: ABBVIE
  Company Number: CA-ABBVIE-5890848

PATIENT
  Sex: Male

DRUGS (4)
  1. SKYRIZI [Suspect]
     Active Substance: RISANKIZUMAB-RZAA
     Indication: Crohn^s disease
     Route: 042
     Dates: start: 20240625, end: 20240820
  2. SKYRIZI [Suspect]
     Active Substance: RISANKIZUMAB-RZAA
     Indication: Crohn^s disease
     Route: 042
  3. PREDNISONE [Concomitant]
     Active Substance: PREDNISONE
     Indication: Crohn^s disease
     Route: 048
     Dates: end: 202408
  4. PREDNISONE [Concomitant]
     Active Substance: PREDNISONE
     Indication: Crohn^s disease
     Dosage: LAST ADMIN DATE WAS 2024
     Route: 048
     Dates: start: 202408

REACTIONS (7)
  - Feeling hot [Not Recovered/Not Resolved]
  - Hyperhidrosis [Unknown]
  - Urticaria [Recovered/Resolved]
  - Crohn^s disease [Unknown]
  - Dermatitis acneiform [Recovered/Resolved]
  - Dermatitis acneiform [Recovering/Resolving]
  - Flushing [Unknown]

NARRATIVE: CASE EVENT DATE: 20240101
